FAERS Safety Report 8821113 (Version 2)
Quarter: 2012Q4

REPORT INFORMATION
  Report Type: 
  Country: JP (occurrence: JP)
  Receive Date: 20121002
  Receipt Date: 20121018
  Transmission Date: 20130627
  Serious: Yes (Hospitalization)
  Sender: FDA-Public Use
  Company Number: JP-GLAXOSMITHKLINE-B0833967A

PATIENT
  Age: 9 Year
  Sex: Male
  Weight: 27 kg

DRUGS (16)
  1. LAMICTAL [Suspect]
     Indication: EPILEPSY
     Route: 048
     Dates: start: 20100723, end: 20101007
  2. LAMICTAL [Suspect]
     Indication: EPILEPSY
     Route: 048
     Dates: start: 20101008, end: 20101226
  3. LAMICTAL [Suspect]
     Indication: EPILEPSY
     Route: 048
     Dates: start: 20101227, end: 20110106
  4. LAMICTAL [Suspect]
     Indication: EPILEPSY
     Route: 048
     Dates: start: 20110107
  5. LAMICTAL [Suspect]
     Indication: EPILEPSY
     Route: 048
  6. LEVETIRACETAM [Suspect]
     Route: 048
  7. LEVETIRACETAM [Suspect]
     Route: 048
  8. LEVETIRACETAM [Suspect]
     Route: 048
  9. LEVETIRACETAM [Suspect]
     Route: 048
  10. MERCAZOLE [Concomitant]
     Indication: HYPERTHYROIDISM
     Dosage: 2MG Per day
     Route: 048
  11. EXCEGRAN [Concomitant]
     Indication: EPILEPSY
     Dosage: 100MG Twice per day
     Route: 048
  12. SELENICA-R [Concomitant]
     Indication: EPILEPSY
     Dosage: 350MG Twice per day
     Route: 048
  13. MYSTAN [Concomitant]
     Indication: EPILEPSY
     Dosage: 4MG Per day
     Route: 048
  14. MYSTAN [Concomitant]
     Indication: EPILEPSY
     Route: 048
  15. MYSTAN [Concomitant]
     Indication: EPILEPSY
     Route: 048
  16. DIAZEPAM [Concomitant]
     Indication: INITIAL INSOMNIA
     Route: 054

REACTIONS (16)
  - Aphagia [Unknown]
  - Somnolence [Unknown]
  - Sleep phase rhythm disturbance [Unknown]
  - Abnormal behaviour [Unknown]
  - Gait disturbance [Recovering/Resolving]
  - Epilepsy [Recovering/Resolving]
  - Initial insomnia [Unknown]
  - Status epilepticus [Unknown]
  - Abasia [Recovering/Resolving]
  - Hypotonia [Recovering/Resolving]
  - Asterixis [Recovering/Resolving]
  - Poor quality sleep [Unknown]
  - Poverty of speech [Unknown]
  - Electroencephalogram abnormal [Recovering/Resolving]
  - Status epilepticus [Unknown]
  - Lethargy [Recovering/Resolving]
